FAERS Safety Report 17962079 (Version 3)
Quarter: 2024Q3

REPORT INFORMATION
  Report Type: Spontaneous
  Country: US (occurrence: US)
  Receive Date: 20200630
  Receipt Date: 20240827
  Transmission Date: 20241017
  Serious: No
  Sender: PFIZER
  Company Number: US-PFIZER INC-2020250148

PATIENT
  Age: 66 Year
  Sex: Female

DRUGS (2)
  1. IBRANCE [Suspect]
     Active Substance: PALBOCICLIB
     Dosage: 100 MG (TAKE 1 TABLET (100 MG TOTAL) BY MOUTH USE)
     Route: 048
     Dates: start: 201701
  2. LETROZOLE [Suspect]
     Active Substance: LETROZOLE
     Dosage: UNK
     Dates: start: 2017

REACTIONS (3)
  - Arthralgia [Unknown]
  - Arthritis [Unknown]
  - Pain [Unknown]
